FAERS Safety Report 14147644 (Version 1)
Quarter: 2017Q4

REPORT INFORMATION
  Report Type: Spontaneous
  Country: US (occurrence: US)
  Receive Date: 20171031
  Receipt Date: 20171031
  Transmission Date: 20180321
  Serious: No
  Sender: FDA-Public Use
  Company Number: US-ROMARKLABS-2017-US-000038

PATIENT
  Age: 68 Year
  Sex: Female

DRUGS (4)
  1. UNSPECIFIED SEIZURE MEDICATION [Concomitant]
     Indication: SEIZURE
     Route: 048
  2. ALINIA [Suspect]
     Active Substance: NITAZOXANIDE
     Indication: GASTROINTESTINAL DISORDER
     Dosage: 1 TABLET BID (3 DOSES TOTAL)
     Route: 048
     Dates: start: 201703, end: 201703
  3. CHOLESTYRAMINE. [Suspect]
     Active Substance: CHOLESTYRAMINE
     Indication: BLOOD CHOLESTEROL INCREASED
     Route: 048
     Dates: start: 201703, end: 201703
  4. DIOVAN [Concomitant]
     Active Substance: VALSARTAN
     Indication: HYPERTENSION
     Route: 048

REACTIONS (6)
  - Drug hypersensitivity [Recovered/Resolved]
  - Abdominal pain upper [Recovered/Resolved]
  - Erythema [Recovered/Resolved]
  - Swelling face [Recovered/Resolved]
  - Nausea [Recovered/Resolved]
  - Paraesthesia oral [Recovered/Resolved]

NARRATIVE: CASE EVENT DATE: 201703
